FAERS Safety Report 5027213-2 (Version None)
Quarter: 2006Q2

REPORT INFORMATION
  Report Type: 
  Country: None (occurrence: None)
  Receive Date: 20060501
  Receipt Date: 20060206
  Transmission Date: 20061013
  Serious: No
  Sender: FDA-Public Use
  Company Number: 200610689BWH

PATIENT
  Sex: Female
  Weight: 51.2565 kg

DRUGS (1)
  1. NEXAVAR [Suspect]
     Indication: RENAL CELL CARCINOMA STAGE UNSPECIFIED
     Dosage: 400 NG BID ORAL
     Route: 048
     Dates: start: 20060126

REACTIONS (5)
  - HYPOTRICHOSIS [None]
  - RASH [None]
  - RASH GENERALISED [None]
  - STOMATITIS [None]
  - URTICARIA [None]
